FAERS Safety Report 21459492 (Version 1)
Quarter: 2022Q4

REPORT INFORMATION
  Report Type: Report from Study
  Country: US (occurrence: US)
  Receive Date: 20221014
  Receipt Date: 20221014
  Transmission Date: 20230112
  Serious: Yes (Other)
  Sender: FDA-Public Use
  Company Number: US-MYLANLABS-2022M1114265

PATIENT

DRUGS (2)
  1. PACLITAXEL [Suspect]
     Active Substance: PACLITAXEL
     Indication: Adenocarcinoma pancreas
     Dosage: UNK; OVER 30 MINUTES ON DAYS, INTRAVENOUS INFUSI..
     Route: 042
  2. CAPECITABINE [Suspect]
     Active Substance: CAPECITABINE
     Indication: Adenocarcinoma pancreas
     Dosage: 825 MILLIGRAM/SQ. METER, BID, MONDAY-FRIDAY
     Route: 048

REACTIONS (3)
  - Leukopenia [Unknown]
  - Enteritis [Unknown]
  - Blood alkaline phosphatase increased [Unknown]
